FAERS Safety Report 4563941-0 (Version None)
Quarter: 2005Q1

REPORT INFORMATION
  Report Type: 
  Country: None (occurrence: None)
  Receive Date: 20050128
  Receipt Date: 20050124
  Transmission Date: 20050727
  Serious: Yes (Other)
  Sender: FDA-Public Use
  Company Number: US-JNJFOC-20041205217

PATIENT
  Sex: Male
  Weight: 59.88 kg

DRUGS (3)
  1. DURAGESIC [Suspect]
     Route: 062
     Dates: start: 20041209, end: 20041212
  2. DARVOCET [Concomitant]
     Route: 049
     Dates: start: 20030101
  3. DARVOCET [Concomitant]
     Indication: PAIN
     Route: 049
     Dates: start: 20030101

REACTIONS (4)
  - ATRIAL FIBRILLATION [None]
  - DIZZINESS [None]
  - HYPERSOMNIA [None]
  - NAUSEA [None]
